FAERS Safety Report 11040445 (Version 1)
Quarter: 2015Q2

REPORT INFORMATION
  Report Type: Spontaneous
  Country: US (occurrence: US)
  Receive Date: 20150416
  Receipt Date: 20150416
  Transmission Date: 20150821
  Serious: No
  Sender: FDA-Public Use
  Company Number: US-BAYER-2015-122255

PATIENT
  Age: 89 Year
  Sex: Female
  Weight: 58 kg

DRUGS (4)
  1. LOTRIMIN ULTRA [Suspect]
     Active Substance: BUTENAFINE HYDROCHLORIDE
     Indication: VULVOVAGINAL PRURITUS
     Dosage: 3 TIMES DAILY, PRN
     Route: 061
  2. LOTRIMIN ULTRA [Suspect]
     Active Substance: BUTENAFINE HYDROCHLORIDE
     Indication: VULVOVAGINAL ERYTHEMA
     Dosage: 1 DOSE, PRN
     Route: 061
     Dates: start: 2011
  3. OMEGA 3 [FISH OIL] [Concomitant]
     Dosage: UNK
  4. DESYREL [Concomitant]
     Active Substance: TRAZODONE HYDROCHLORIDE
     Dosage: UNK

REACTIONS (2)
  - Drug administered at inappropriate site [Unknown]
  - Incorrect drug administration duration [Unknown]

NARRATIVE: CASE EVENT DATE: 2011
